FAERS Safety Report 7192132-2 (Version None)
Quarter: 2010Q4

REPORT INFORMATION
  Report Type: 
  Country: None (occurrence: None)
  Receive Date: 20101223
  Receipt Date: 20101217
  Transmission Date: 20110411
  Serious: Yes (Other)
  Sender: FDA-Public Use
  Company Number: FR-BRISTOL-MYERS SQUIBB COMPANY-15453160

PATIENT
  Age: 78 Year
  Sex: Female

DRUGS (11)
  1. IRBESARTAN [Suspect]
     Indication: HYPERTENSION
     Route: 048
  2. CORTANCYL [Suspect]
     Indication: DERMATOMYOSITIS
     Dosage: INITIAL DOSE 70 MG/D THEN AT LOWER DOSE FROM JUL-2009
  3. FEMARA [Suspect]
     Indication: BREAST CANCER
     Route: 048
  4. PLAQUENIL [Suspect]
     Indication: DERMATOMYOSITIS
     Route: 048
     Dates: start: 20090501, end: 20101001
  5. METOJECT [Suspect]
     Indication: DERMATOMYOSITIS
     Dosage: EVERY MONDAY
  6. SPECIAFOLDINE [Suspect]
     Dosage: EVERY DAY EXCEPT MONDAY
     Route: 048
  7. PANTOPRAZOLE [Suspect]
     Dosage: FROM PRIOR TO AUGUST 2009
  8. CACIT D3 [Suspect]
     Dosage: FROM PRIOR TO AUGUST 2009
     Route: 048
  9. FOSAMAX [Suspect]
     Dosage: EVERY FRIDAY FROM PRIOR TO AUGUST 2009
     Route: 048
  10. ZELITREX [Suspect]
     Route: 048
  11. SEROPLEX [Suspect]
     Indication: DEPRESSION
     Route: 048

REACTIONS (1)
  - CATARACT [None]
